FAERS Safety Report 25830718 (Version 1)
Quarter: 2025Q3

REPORT INFORMATION
  Report Type: Report from Study
  Country: US (occurrence: US)
  Receive Date: 20250922
  Receipt Date: 20250922
  Transmission Date: 20251021
  Serious: Yes (Other)
  Sender: MYLAN
  Company Number: US-MYLANLABS-2025M1080047

PATIENT
  Sex: Male

DRUGS (4)
  1. PHENYTOIN [Suspect]
     Active Substance: PHENYTOIN
     Indication: Product used for unknown indication
  2. PHENYTOIN [Suspect]
     Active Substance: PHENYTOIN
     Route: 065
  3. PHENYTOIN [Suspect]
     Active Substance: PHENYTOIN
     Route: 065
  4. PHENYTOIN [Suspect]
     Active Substance: PHENYTOIN

REACTIONS (1)
  - Seizure [Unknown]
